FAERS Safety Report 5716241-7 (Version None)
Quarter: 2008Q2

REPORT INFORMATION
  Report Type: 
  Country: None (occurrence: None)
  Receive Date: 20080424
  Receipt Date: 20080417
  Transmission Date: 20081010
  Serious: Yes (Hospitalization)
  Sender: FDA-Public Use
  Company Number: A0703909A

PATIENT
  Age: 38 Year
  Sex: Female
  Weight: 73.5 kg

DRUGS (3)
  1. PAZOPANIB [Suspect]
     Dosage: 800MG PER DAY
     Route: 048
     Dates: start: 20071221
  2. LAPATINIB [Suspect]
     Dosage: 1500MG PER DAY
     Route: 048
     Dates: start: 20071221
  3. COUMADIN [Concomitant]
     Dosage: 2MG PER DAY
     Route: 048
     Dates: start: 20070601

REACTIONS (2)
  - ABDOMINAL PAIN [None]
  - HAEMATURIA [None]
